FAERS Safety Report 16451053 (Version 6)
Quarter: 2023Q2

REPORT INFORMATION
  Report Type: Spontaneous
  Country: US (occurrence: US)
  Receive Date: 20190619
  Receipt Date: 20230531
  Transmission Date: 20230722
  Serious: No
  Sender: FDA-Public Use
  Company Number: US-PFIZER INC-2019256111

PATIENT
  Age: 54 Year
  Sex: Female

DRUGS (1)
  1. XELJANZ [Suspect]
     Active Substance: TOFACITINIB CITRATE
     Indication: Rheumatoid arthritis
     Dosage: 5 MG

REACTIONS (11)
  - Brain fog [Unknown]
  - Feeling abnormal [Unknown]
  - Illness [Unknown]
  - Headache [Unknown]
  - Stress [Unknown]
  - Neck pain [Unknown]
  - Back pain [Unknown]
  - Stomatitis [Unknown]
  - Dry eye [Unknown]
  - Tooth infection [Unknown]
  - Product dose omission issue [Unknown]
